FAERS Safety Report 17908523 (Version 1)
Quarter: 2020Q2

REPORT INFORMATION
  Report Type: Spontaneous
  Country: IT (occurrence: IT)
  Receive Date: 20200617
  Receipt Date: 20200617
  Transmission Date: 20200714
  Serious: Yes (Other)
  Sender: FDA-Public Use
  Company Number: NVSC2020IT148716

PATIENT
  Age: 76 Year
  Sex: Female

DRUGS (3)
  1. ADALIMUMAB [Suspect]
     Active Substance: ADALIMUMAB
     Indication: SPONDYLITIS
     Dosage: 40 MG/KG, Q2W
     Route: 041
  2. ADALIMUMAB [Suspect]
     Active Substance: ADALIMUMAB
     Indication: CROHN^S DISEASE
  3. CERTOLIZUMAB [Suspect]
     Active Substance: CERTOLIZUMAB
     Indication: CROHN^S DISEASE
     Dosage: UNK
     Route: 041

REACTIONS (5)
  - Drug ineffective [Unknown]
  - Spondylitis [Unknown]
  - Drug specific antibody present [Not Recovered/Not Resolved]
  - Crohn^s disease [Unknown]
  - Drug specific antibody [Not Recovered/Not Resolved]
